FAERS Safety Report 5574651-5 (Version None)
Quarter: 2007Q4

REPORT INFORMATION
  Report Type: 
  Country: None (occurrence: None)
  Receive Date: 20071130
  Receipt Date: 20070913
  Transmission Date: 20080405
  Serious: No
  Sender: FDA-Public Use
  Company Number: US200708005042

PATIENT
  Age: 74 Year
  Sex: Female
  Weight: 70.7 kg

DRUGS (7)
  1. BYETTA [Suspect]
     Indication: TYPE 2 DIABETES MELLITUS
     Dosage: 5 UG, 2/D, SUBCUTANEOUS : 5 UG, EACH EVENING, SUBCUTANEOUS
     Route: 058
     Dates: start: 20070819, end: 20070820
  2. BYETTA [Suspect]
     Indication: TYPE 2 DIABETES MELLITUS
     Dosage: 5 UG, 2/D, SUBCUTANEOUS : 5 UG, EACH EVENING, SUBCUTANEOUS
     Route: 058
     Dates: start: 20070821, end: 20070827
  3. EXENATIDE PEN, DISPOSABLE DEVICE (EXENATIDE PEN) PEN,DISPOSABLE [Concomitant]
  4. PRANDIN [Concomitant]
  5. LIPITOR [Concomitant]
  6. SINGULAIR [Concomitant]
  7. ALLEGRA [Concomitant]

REACTIONS (7)
  - DYSPNOEA [None]
  - HEADACHE [None]
  - LOCAL SWELLING [None]
  - NAUSEA [None]
  - PHARYNGEAL OEDEMA [None]
  - PHARYNGOLARYNGEAL PAIN [None]
  - VOMITING [None]
